FAERS Safety Report 9381011 (Version 1)
Quarter: 2013Q3

REPORT INFORMATION
  Report Type: Spontaneous
  Country: US (occurrence: US)
  Receive Date: 20130703
  Receipt Date: 20130703
  Transmission Date: 20140515
  Serious: Yes (Other)
  Sender: FDA-Public Use
  Company Number: US-BRISTOL-MYERS SQUIBB COMPANY-19065937

PATIENT
  Sex: Male

DRUGS (3)
  1. ERBITUX [Suspect]
     Indication: HEAD AND NECK CANCER METASTATIC
  2. CARBOPLATIN [Suspect]
     Indication: HEAD AND NECK CANCER METASTATIC
  3. 5-FLUOROURACIL [Suspect]
     Indication: HEAD AND NECK CANCER METASTATIC

REACTIONS (1)
  - Face oedema [Unknown]
